FAERS Safety Report 4967636-0 (Version None)
Quarter: 2006Q2

REPORT INFORMATION
  Report Type: 
  Country: None (occurrence: None)
  Receive Date: 20060403
  Receipt Date: 20060322
  Transmission Date: 20061013
  Serious: Yes (Other)
  Sender: FDA-Public Use
  Company Number: 2006-03-1515

PATIENT

DRUGS (7)
  1. INTEGRILIN [Suspect]
     Indication: CORONARY ANGIOPLASTY
     Dosage: SEE IMAGE
     Route: 042
     Dates: start: 20060317, end: 20060317
  2. INTEGRILIN [Suspect]
     Indication: CORONARY ANGIOPLASTY
     Dosage: SEE IMAGE
     Route: 042
     Dates: start: 20060317, end: 20060317
  3. INTEGRILIN [Suspect]
     Indication: CORONARY ANGIOPLASTY
     Dosage: SEE IMAGE
     Route: 042
     Dates: start: 20060317
  4. HEPARIN [Suspect]
     Indication: CORONARY ANGIOPLASTY
     Dosage: 5000 U
     Dates: start: 20060317
  5. LOVENOX [Suspect]
     Indication: CORONARY ANGIOPLASTY
     Dates: start: 20060317
  6. PLAVIX [Suspect]
     Indication: CORONARY ANGIOPLASTY
     Dosage: 300 MG
     Dates: start: 20060317
  7. ASPIRIN [Concomitant]

REACTIONS (2)
  - PROCEDURAL COMPLICATION [None]
  - PULMONARY HAEMORRHAGE [None]
